FAERS Safety Report 11070698 (Version 2)
Quarter: 2015Q2

REPORT INFORMATION
  Report Type: Spontaneous
  Country: PT (occurrence: PT)
  Receive Date: 20150427
  Receipt Date: 20150518
  Transmission Date: 20150821
  Serious: Yes (Disabling, Other)
  Sender: FDA-Public Use
  Company Number: PT-BMSGILMSD-2015-0150420

PATIENT
  Age: 19 Year
  Sex: Female
  Weight: 51 kg

DRUGS (1)
  1. ATRIPLA [Suspect]
     Active Substance: EFAVIRENZ\EMTRICITABINE\TENOFOVIR DISOPROXIL FUMARATE
     Indication: HIV INFECTION
     Dosage: 1 DF, QD
     Route: 048
     Dates: start: 20150325, end: 20150406

REACTIONS (3)
  - Urticaria [Recovered/Resolved]
  - Exfoliative rash [Recovered/Resolved]
  - Prurigo [Recovered/Resolved]

NARRATIVE: CASE EVENT DATE: 20150404
